FAERS Safety Report 8969467 (Version 1)
Quarter: 2012Q4

REPORT INFORMATION
  Report Type: 
  Country: US (occurrence: US)
  Receive Date: 20121217
  Receipt Date: 20121217
  Transmission Date: 20130627
  Serious: No
  Sender: FDA-Public Use
  Company Number: US-BAYER-2012-127663

PATIENT
  Age: 29 Year
  Sex: Female
  Weight: 66.67 kg

DRUGS (7)
  1. BETASERON [Suspect]
     Dosage: 0.25 mg, QOD
     Route: 058
  2. BETASERON [Suspect]
     Dosage: 0.25 mg, QOD
     Route: 058
  3. ADDERALL [Concomitant]
     Dosage: 5 mg, UNK
  4. VITAMIN B [Concomitant]
  5. VITAMIN C [Concomitant]
     Dosage: 500 mg, UNK
  6. GARLIC [Concomitant]
     Dosage: 1000 mg, UNK
  7. FLAXSEED OIL [Concomitant]

REACTIONS (2)
  - Joint stiffness [Unknown]
  - Arthralgia [Unknown]
